FAERS Safety Report 15602609 (Version 3)
Quarter: 2020Q1

REPORT INFORMATION
  Report Type: Report from Study
  Country: US (occurrence: US)
  Receive Date: 20181109
  Receipt Date: 20200303
  Transmission Date: 20200409
  Serious: No
  Sender: FDA-Public Use
  Company Number: US-SA-2018SA077910

PATIENT
  Age: 73 Year
  Sex: Female

DRUGS (10)
  1. AVAPRO [Concomitant]
     Active Substance: IRBESARTAN
  2. NORTRIPTYLIN [Concomitant]
     Active Substance: NORTRIPTYLINE
     Dosage: 75 MG
  3. CALCIUM [Concomitant]
     Active Substance: CALCIUM
     Dosage: 600 MG
  4. LORAZEPAM. [Concomitant]
     Active Substance: LORAZEPAM
  5. SYNTHROID [Concomitant]
     Active Substance: LEVOTHYROXINE SODIUM
  6. AMLODIPINE BESILATE [Concomitant]
     Active Substance: AMLODIPINE BESYLATE
  7. TERIFLUNOMIDE. [Suspect]
     Active Substance: TERIFLUNOMIDE
     Indication: MULTIPLE SCLEROSIS
     Dosage: 7 MG, QD
     Route: 048
     Dates: start: 20180101
  8. GABAPENTIN. [Concomitant]
     Active Substance: GABAPENTIN
  9. TRAMADOL HYDROCHLORIDE. [Concomitant]
     Active Substance: TRAMADOL HYDROCHLORIDE
  10. VITAMIN D [COLECALCIFEROL] [Concomitant]
     Active Substance: CHOLECALCIFEROL

REACTIONS (7)
  - Balance disorder [Not Recovered/Not Resolved]
  - Pain [Not Recovered/Not Resolved]
  - Alopecia [Not Recovered/Not Resolved]
  - Drug ineffective [Unknown]
  - Back pain [Unknown]
  - Hypoaesthesia [Not Recovered/Not Resolved]
  - Poor quality sleep [Unknown]
